FAERS Safety Report 5615501-8 (Version None)
Quarter: 2008Q1

REPORT INFORMATION
  Report Type: 
  Country: None (occurrence: None)
  Receive Date: 20080206
  Receipt Date: 20080125
  Transmission Date: 20080703
  Serious: Yes (Hospitalization, Other)
  Sender: FDA-Public Use
  Company Number: US-ELI_LILLY_AND_COMPANY-US200607000767

PATIENT
  Sex: Male
  Weight: 73.469 kg

DRUGS (10)
  1. FORTEO [Suspect]
     Indication: OSTEOPOROSIS
     Dosage: UNK, UNK
     Dates: start: 20050101
  2. FORTEO [Suspect]
     Dates: start: 20070611
  3. CALCIUM GLUCONATE [Concomitant]
     Indication: MINERAL SUPPLEMENTATION
     Dosage: UNK UNK, DAILY (1/D)
  4. VITAMINS [Concomitant]
     Indication: VITAMIN SUPPLEMENTATION
     Dosage: UNK UNK, DAILY (1/D)
  5. LASIX [Concomitant]
     Indication: ASCITES
     Dosage: UNKNOWN
  6. LASIX [Concomitant]
     Dosage: 40 MG, THREE EACH MORNING
  7. KLOR-CON M [Concomitant]
     Dosage: 10 MEQ, EXTENDED RELEASE THREE TABLETS DAILY (1/D)
     Route: 048
  8. OMEPRAZOLE [Concomitant]
     Dosage: 20 MG, EXTENDED RELEASE, ONE CAPSULE
     Route: 048
  9. PROPRANOLOL HYDROCHLORIDE [Concomitant]
     Dosage: 10 MG, ONE
     Route: 048
  10. VITAMIN D [Concomitant]
     Indication: OSTEOPOROSIS

REACTIONS (22)
  - ACCIDENT [None]
  - ASCITES [None]
  - BONE PAIN [None]
  - CLAVICLE FRACTURE [None]
  - CLOSTRIDIAL INFECTION [None]
  - DISLOCATION OF JOINT PROSTHESIS [None]
  - EXTRADURAL HAEMATOMA [None]
  - FOOT DEFORMITY [None]
  - HAEMORRHAGE [None]
  - HEAD INJURY [None]
  - HEPATITIS C [None]
  - IMPAIRED FASTING GLUCOSE [None]
  - INGUINAL HERNIA [None]
  - JOINT STIFFNESS [None]
  - LUNG INFILTRATION [None]
  - MUSCLE ATROPHY [None]
  - RIB FRACTURE [None]
  - ROTATOR CUFF SYNDROME [None]
  - SCAPULA FRACTURE [None]
  - SKULL FRACTURE [None]
  - SPINAL DISORDER [None]
  - WEIGHT DECREASED [None]
